FAERS Safety Report 5238818-8 (Version None)
Quarter: 2007Q1

REPORT INFORMATION
  Report Type: 
  Country: None (occurrence: None)
  Receive Date: 20070215
  Receipt Date: 20070205
  Transmission Date: 20070707
  Serious: Yes (Hospitalization, Other)
  Sender: FDA-Public Use
  Company Number: BR-PFIZER INC-2006151672

PATIENT
  Sex: Female
  Weight: 57 kg

DRUGS (6)
  1. DEPO-PROVERA [Suspect]
     Indication: PREMENSTRUAL SYNDROME
     Dates: start: 20060401, end: 20060401
  2. DEPO-PROVERA [Suspect]
     Indication: OVARIAN CYST
     Dates: start: 20060701, end: 20060701
  3. VENLAFAXINE HCL [Concomitant]
     Route: 048
  4. VENLAFAXINE HCL [Concomitant]
     Route: 048
  5. TRYPTANOL [Concomitant]
     Route: 048
  6. TRYPTANOL [Concomitant]

REACTIONS (6)
  - AUTOIMMUNE THYROIDITIS [None]
  - DIZZINESS [None]
  - INSOMNIA [None]
  - METASTASES TO LYMPH NODES [None]
  - PAPILLARY THYROID CANCER [None]
  - WEIGHT INCREASED [None]
